FAERS Safety Report 23996162 (Version 1)
Quarter: 2024Q2

REPORT INFORMATION
  Report Type: Spontaneous
  Country: US (occurrence: US)
  Receive Date: 20240620
  Receipt Date: 20240620
  Transmission Date: 20240716
  Serious: No
  Sender: FDA-Public Use
  Company Number: US-SA-SAC20240614000827

PATIENT
  Sex: Male
  Weight: 61 kg

DRUGS (2)
  1. DUPIXENT [Suspect]
     Active Substance: DUPILUMAB
     Indication: Dermatitis atopic
     Dosage: 300 MG, QOW
     Route: 058
  2. RINVOQ [Concomitant]
     Active Substance: UPADACITINIB
     Dosage: UNK

REACTIONS (6)
  - Hordeolum [Not Recovered/Not Resolved]
  - Influenza like illness [Unknown]
  - Pruritus [Unknown]
  - Erythema [Unknown]
  - Erythema of eyelid [Not Recovered/Not Resolved]
  - Drug ineffective [Unknown]
